FAERS Safety Report 20851276 (Version 8)
Quarter: 2022Q4

REPORT INFORMATION
  Report Type: Report from Study
  Country: US (occurrence: US)
  Receive Date: 20220519
  Receipt Date: 20221130
  Transmission Date: 20230113
  Serious: Yes (Hospitalization)
  Sender: FDA-Public Use
  Company Number: US-GILEAD-2022-0581737

PATIENT
  Sex: Male
  Weight: 75 kg

DRUGS (19)
  1. SACITUZUMAB GOVITECAN [Suspect]
     Active Substance: SACITUZUMAB GOVITECAN
     Indication: Transitional cell carcinoma
     Dosage: 10 MG/KG, C1 D1-D8
     Route: 042
     Dates: start: 20220427, end: 20220504
  2. SACITUZUMAB GOVITECAN [Suspect]
     Active Substance: SACITUZUMAB GOVITECAN
     Indication: Metastases to kidney
     Dosage: UNK
     Route: 042
     Dates: start: 20220525
  3. CISPLATIN [Suspect]
     Active Substance: CISPLATIN
     Indication: Transitional cell carcinoma
     Dosage: 70 MG/M2
     Route: 042
     Dates: start: 20220427, end: 20220427
  4. CISPLATIN [Suspect]
     Active Substance: CISPLATIN
     Indication: Metastases to kidney
  5. NARCO [Concomitant]
     Indication: Back pain
     Dosage: UNK
     Dates: start: 2011
  6. CEFIXIME [Concomitant]
     Active Substance: CEFIXIME
     Indication: Back pain
     Dosage: UNK
     Dates: start: 2015
  7. ASPIRIN [Concomitant]
     Active Substance: ASPIRIN
     Dosage: UNK
     Dates: start: 2016
  8. ALPHAGAN P [Concomitant]
     Active Substance: BRIMONIDINE TARTRATE
     Indication: Glaucoma
     Dosage: UNK
     Dates: start: 2020
  9. LATANOPROST OPTIC [Concomitant]
     Indication: Glaucoma
     Dosage: UNK
     Dates: start: 2020
  10. VIT D [VITAMIN D NOS] [Concomitant]
     Dosage: UNK
     Dates: start: 2016
  11. GABAPENTIN [Concomitant]
     Active Substance: GABAPENTIN
     Indication: Arthralgia
     Dosage: UNK
     Dates: start: 2020
  12. METFORMIN [Concomitant]
     Active Substance: METFORMIN HYDROCHLORIDE
     Indication: Diabetes mellitus
     Dosage: UNK
     Dates: start: 2018
  13. GLIMEPIRIDE [Concomitant]
     Active Substance: GLIMEPIRIDE
     Indication: Diabetes mellitus
     Dosage: UNK
     Dates: start: 2016
  14. FARXIGA [Concomitant]
     Active Substance: DAPAGLIFLOZIN PROPANEDIOL
     Indication: Diabetes mellitus
     Dosage: UNK
     Dates: start: 2021
  15. CRESTOR [Concomitant]
     Active Substance: ROSUVASTATIN CALCIUM
     Indication: Blood cholesterol
     Dosage: UNK
     Dates: start: 2018
  16. OMEPRAZOLE [Concomitant]
     Active Substance: OMEPRAZOLE
     Indication: Gastrooesophageal reflux disease
     Dosage: UNK
     Dates: start: 2018
  17. DICLOFENAC [Concomitant]
     Active Substance: DICLOFENAC
     Indication: Back pain
     Dosage: UNK
     Dates: start: 2021
  18. ZYLOPRIM [Concomitant]
     Active Substance: ALLOPURINOL
     Indication: Gout
     Dosage: UNK
     Dates: start: 2017
  19. INSULIN NOS [Concomitant]
     Active Substance: INSULIN NOS

REACTIONS (5)
  - Colitis [Recovered/Resolved]
  - Fatigue [Recovered/Resolved]
  - Diarrhoea [Recovered/Resolved]
  - Abdominal pain [Recovered/Resolved]
  - Nausea [Recovered/Resolved]

NARRATIVE: CASE EVENT DATE: 20220507
